FAERS Safety Report 9238827 (Version 1)
Quarter: 2013Q1

REPORT INFORMATION
  Report Type: Spontaneous
  Country: US (occurrence: None)
  Receive Date: 20121113
  Receipt Date: 20121113
  Transmission Date: 20140127
  Serious: Yes (Other)
  Sender: FDA-Public Use
  Company Number: PHEH2012US003981

PATIENT
  Age: 34 Year
  Sex: Female

DRUGS (2)
  1. TRILEPTAL [Suspect]
  2. OXCARBAZEPINE [Suspect]

REACTIONS (3)
  - Convulsion [None]
  - Drug ineffective [None]
  - Maternal exposure during pregnancy [None]
